FAERS Safety Report 9012885 (Version 1)
Quarter: 2013Q1

REPORT INFORMATION
  Report Type: Report from Study
  Country: DE (occurrence: DE)
  Receive Date: 20130114
  Receipt Date: 20130114
  Transmission Date: 20140127
  Serious: Yes (Other)
  Sender: FDA-Public Use
  Company Number: DE-ABBOTT-13P-062-1035096-00

PATIENT
  Age: 36 Year
  Sex: Female

DRUGS (1)
  1. KALETRA TABLETS 100/25 [Suspect]
     Indication: HIV INFECTION
     Dates: start: 20100301

REACTIONS (1)
  - Cervix carcinoma [Unknown]
